FAERS Safety Report 8105248-0 (Version None)
Quarter: 2012Q1

REPORT INFORMATION
  Report Type: 
  Country: None (occurrence: None)
  Receive Date: 20120201
  Receipt Date: 20120130
  Transmission Date: 20120608
  Serious: Yes (Hospitalization)
  Sender: FDA-Public Use
  Company Number: US-B.I. PHARMACEUTICALS,INC./RIDGEFIELD-2012-BP-01830BP

PATIENT
  Age: 77 Year
  Sex: Male

DRUGS (11)
  1. LISINOPRIL [Concomitant]
     Route: 048
  2. CLARITIN [Concomitant]
     Route: 048
  3. AMBIEN [Concomitant]
     Route: 048
  4. IRON [Concomitant]
     Route: 048
  5. VITAMIN D [Concomitant]
     Route: 048
  6. COREG [Concomitant]
     Route: 048
  7. PRADAXA [Suspect]
  8. SIMVASTATIN [Concomitant]
     Route: 048
  9. ASPIRIN [Concomitant]
     Dosage: 81 MG
     Route: 048
  10. LOVAZA [Concomitant]
     Route: 048
  11. OMEPRAZOLE [Concomitant]
     Route: 048

REACTIONS (2)
  - ADVERSE EVENT [None]
  - PLATELET COUNT DECREASED [None]
